FAERS Safety Report 12519602 (Version 3)
Quarter: 2016Q3

REPORT INFORMATION
  Report Type: Spontaneous
  Country: JP (occurrence: JP)
  Receive Date: 20160701
  Receipt Date: 20160719
  Transmission Date: 20161109
  Serious: Yes (Hospitalization, Other)
  Sender: FDA-Public Use
  Company Number: JP-APOTEX-2016AP009585

PATIENT
  Age: 49 Year
  Sex: Female

DRUGS (4)
  1. CONSTAN                            /00595201/ [Concomitant]
     Active Substance: ALPRAZOLAM
     Indication: DEPRESSION
     Dosage: 0.4 MG, QID
     Route: 048
     Dates: start: 20090410
  2. WYPAX [Concomitant]
     Active Substance: LORAZEPAM
     Indication: DEPRESSION
     Dosage: 0.5 MG, QD
     Route: 048
     Dates: start: 20090410
  3. PAXIL [Suspect]
     Active Substance: PAROXETINE HYDROCHLORIDE
     Indication: DEPRESSION
     Dosage: 10 MG, QD
     Route: 048
     Dates: start: 20090410, end: 20160318
  4. HORIZON [Concomitant]
     Active Substance: DIAZEPAM
     Indication: DEPRESSION
     Dosage: 2 MG, BID
     Route: 048
     Dates: start: 20090410

REACTIONS (2)
  - Neoplasm malignant [Unknown]
  - Breast mass [Unknown]

NARRATIVE: CASE EVENT DATE: 201603
